FAERS Safety Report 9210592 (Version 2)
Quarter: 2013Q2

REPORT INFORMATION
  Report Type: Spontaneous
  Country: US (occurrence: US)
  Receive Date: 20130404
  Receipt Date: 20130604
  Transmission Date: 20140414
  Serious: Yes (Hospitalization)
  Sender: FDA-Public Use
  Company Number: US-GILEAD-2013-0072807

PATIENT
  Age: 74 Year
  Sex: Female

DRUGS (3)
  1. LETAIRIS [Suspect]
     Indication: PULMONARY HYPERTENSION
     Dosage: 5 MG, QD
     Route: 048
     Dates: start: 20120125, end: 20130307
  2. LETAIRIS [Suspect]
     Indication: DIASTOLIC DYSFUNCTION
  3. LETAIRIS [Suspect]
     Indication: CARDIAC FAILURE ACUTE

REACTIONS (2)
  - Cardiac failure congestive [Recovered/Resolved]
  - Unevaluable event [Unknown]
